FAERS Safety Report 6997148-4 (Version None)
Quarter: 2010Q3

REPORT INFORMATION
  Report Type: 
  Country: None (occurrence: None)
  Receive Date: 20100918
  Receipt Date: 20090911
  Transmission Date: 20110219
  Serious: No
  Sender: FDA-Public Use
  Company Number: US-WYE-H10959809

PATIENT
  Sex: Female

DRUGS (5)
  1. PRISTIQ [Suspect]
     Indication: DEPRESSION
     Route: 048
     Dates: start: 20090601, end: 20090909
  2. PRISTIQ [Suspect]
     Route: 048
     Dates: start: 20090911
  3. TRAZODONE HCL [Concomitant]
  4. DEPAKOTE [Concomitant]
  5. BUSPAR [Concomitant]

REACTIONS (3)
  - AGITATION [None]
  - DRUG WITHDRAWAL SYNDROME [None]
  - MUSCLE SPASMS [None]
